FAERS Safety Report 4301527-3 (Version None)
Quarter: 2004Q1

REPORT INFORMATION
  Report Type: 
  Country: None (occurrence: None)
  Receive Date: 20040126
  Receipt Date: 20030930
  Transmission Date: 20041129
  Serious: No
  Sender: FDA-Public Use
  Company Number: USA031048696

PATIENT
  Age: 10 Year
  Sex: Male
  Weight: 51 kg

DRUGS (4)
  1. STRATTERA [Suspect]
     Indication: ATTENTION DEFICIT/HYPERACTIVITY DISORDER
     Dosage: 25 MG/I IN THE MORNING
     Dates: start: 20030601
  2. CONCERTA(METHYLPHENIDATE HYDRYCLORIDE) [Concomitant]
  3. ZYRTECH (CETIRIZINE HYDROCHLORIDE) [Concomitant]
  4. ADVAIR DISKUS 100/50 [Concomitant]

REACTIONS (4)
  - ABNORMAL BEHAVIOUR [None]
  - DRUG INEFFECTIVE [None]
  - INFREQUENT BOWEL MOVEMENTS [None]
  - MEDICATION RESIDUE [None]
